FAERS Safety Report 10230725 (Version 1)
Quarter: 2014Q2

REPORT INFORMATION
  Report Type: Spontaneous
  Country: US (occurrence: US)
  Receive Date: 20140611
  Receipt Date: 20140611
  Transmission Date: 20141212
  Serious: Yes (Other)
  Sender: FDA-Public Use
  Company Number: US-PFIZER INC-2014159786

PATIENT
  Age: 67 Year
  Sex: Female
  Weight: 66.67 kg

DRUGS (3)
  1. CELEBREX [Suspect]
     Indication: BACK PAIN
     Dosage: UNK
  2. CELEBREX [Suspect]
     Dosage: 200 MG, SINGLE
     Dates: start: 20140606, end: 20140606
  3. LORAZEPAM [Concomitant]
     Indication: ANXIETY
     Dosage: 2 MG, 3X/DAY

REACTIONS (1)
  - Blood urine present [Recovering/Resolving]
